FAERS Safety Report 25660434 (Version 1)
Quarter: 2025Q3

REPORT INFORMATION
  Report Type: Spontaneous
  Country: US (occurrence: US)
  Receive Date: 20250808
  Receipt Date: 20250808
  Transmission Date: 20251020
  Serious: No
  Sender: CALLIDITAS THERAPEUTICS AB
  Company Number: US-Calliditas-2025CAL02294

PATIENT
  Age: 37 Year
  Sex: Male

DRUGS (1)
  1. TARPEYO [Suspect]
     Active Substance: BUDESONIDE
     Indication: IgA nephropathy
     Dosage: TAKE 4 CAPSULES (16 MG) BY MOUTH ONCE DAILY FOR IGAN
     Route: 048
     Dates: start: 20250121

REACTIONS (1)
  - Cushingoid [Not Recovered/Not Resolved]
